FAERS Safety Report 5753851-5 (Version None)
Quarter: 2008Q2

REPORT INFORMATION
  Report Type: 
  Country: None (occurrence: None)
  Receive Date: 20080530
  Receipt Date: 20080211
  Transmission Date: 20081010
  Serious: Yes (Other)
  Sender: FDA-Public Use
  Company Number: A0710029A

PATIENT
  Age: 40 Year
  Sex: Female
  Weight: 65.9 kg

DRUGS (1)
  1. FLOLAN [Suspect]
     Route: 042
     Dates: start: 20071101, end: 20070101

REACTIONS (1)
  - ANAEMIA [None]
